FAERS Safety Report 6240338-9 (Version None)
Quarter: 2009Q2

REPORT INFORMATION
  Report Type: 
  Country: None (occurrence: None)
  Receive Date: 20090623
  Receipt Date: 20080728
  Transmission Date: 20091009
  Serious: No
  Sender: FDA-Public Use
  Company Number: US-ASTRAZENECA-2008UW15491

PATIENT
  Age: 67 Year
  Sex: Female
  Weight: 47.6 kg

DRUGS (8)
  1. PULMICORT RESPULES [Suspect]
     Indication: EMPHYSEMA
     Dosage: 0.5MG/ML TWICE DAILY
     Route: 055
  2. PULMICORT RESPULES [Suspect]
     Indication: CHRONIC OBSTRUCTIVE PULMONARY DISEASE
     Dosage: 0.5MG/ML TWICE DAILY
     Route: 055
  3. PERFORMIST [Concomitant]
  4. SPIRIVA [Concomitant]
  5. SYNTHROID [Concomitant]
  6. DILTIAZEM [Concomitant]
  7. HYDROCODONE BITARTRATE [Concomitant]
  8. CLONAZEPAM [Concomitant]

REACTIONS (2)
  - DRY MOUTH [None]
  - ORAL PAIN [None]
